FAERS Safety Report 7685351-X (Version None)
Quarter: 2011Q3

REPORT INFORMATION
  Report Type: 
  Country: None (occurrence: None)
  Receive Date: 20110803
  Receipt Date: 20110728
  Transmission Date: 20111222
  Serious: Yes (Hospitalization, Other)
  Sender: FDA-Public Use
  Company Number: AEDEU201100188

PATIENT
  Age: 78 Year
  Sex: Male

DRUGS (2)
  1. JONOSTERIL [Concomitant]
  2. GAMUNEX [Suspect]
     Indication: CHRONIC INFLAMMATORY DEMYELINATING POLYRADICULONEUROPATHY
     Dosage: IV
     Route: 042
     Dates: start: 20110301

REACTIONS (13)
  - WHEELCHAIR USER [None]
  - IMMOBILE [None]
  - PULMONARY EMBOLISM [None]
  - CHRONIC INFLAMMATORY DEMYELINATING POLYRADICULONEUROPATHY [None]
  - THROMBOSIS [None]
  - DRUG ADMINISTRATION ERROR [None]
  - HYPERCOAGULATION [None]
  - DISEASE PROGRESSION [None]
  - PERIPHERAL COLDNESS [None]
  - DISCOMFORT [None]
  - VENOUS OCCLUSION [None]
  - WRONG TECHNIQUE IN DRUG USAGE PROCESS [None]
  - PHLEBITIS SUPERFICIAL [None]
